FAERS Safety Report 9063779 (Version 1)
Quarter: 2013Q1

REPORT INFORMATION
  Report Type: Report from Study
  Country: US (occurrence: US)
  Receive Date: 20130129
  Receipt Date: 20130129
  Transmission Date: 20140127
  Serious: No
  Sender: FDA-Public Use
  Company Number: US-ABBOTT-12P-163-0944529-00

PATIENT
  Age: 44 Year
  Sex: Female

DRUGS (14)
  1. HUMIRA 40 MG/0.8 ML PEN [Suspect]
     Indication: CROHN^S DISEASE
     Dates: start: 20120510
  2. AZATHIOPRINE [Concomitant]
     Indication: PRODUCT USED FOR UNKNOWN INDICATION
  3. CALCIUM CITRATE D [Concomitant]
     Indication: PRODUCT USED FOR UNKNOWN INDICATION
     Dosage: 600/500MG THREE TIMES A DAY
  4. ZYRTEC [Concomitant]
     Indication: PRODUCT USED FOR UNKNOWN INDICATION
  5. FLONASE [Concomitant]
     Indication: PRODUCT USED FOR UNKNOWN INDICATION
     Dosage: NASAL SPRAY
  6. ASTELIN [Concomitant]
     Indication: PRODUCT USED FOR UNKNOWN INDICATION
     Dosage: NASAL SPRAY
  7. FOLIC ACID [Concomitant]
     Indication: PRODUCT USED FOR UNKNOWN INDICATION
  8. MULTIVITAMIN [Concomitant]
     Indication: PRODUCT USED FOR UNKNOWN INDICATION
  9. BIOTIN [Concomitant]
     Indication: PRODUCT USED FOR UNKNOWN INDICATION
  10. CLINDAMAX [Concomitant]
     Indication: DRY SKIN
  11. CUTIVATE [Concomitant]
     Indication: PRODUCT USED FOR UNKNOWN INDICATION
  12. FLUOCINOLONE [Concomitant]
     Indication: PRODUCT USED FOR UNKNOWN INDICATION
  13. TRIAMCINOLONE [Concomitant]
     Indication: PRODUCT USED FOR UNKNOWN INDICATION
  14. UNKNOWN ALLERGY SHOT [Concomitant]
     Indication: PRODUCT USED FOR UNKNOWN INDICATION
     Dosage: MONTHLY

REACTIONS (3)
  - Weight increased [Not Recovered/Not Resolved]
  - Contusion [Not Recovered/Not Resolved]
  - Pain [Not Recovered/Not Resolved]
